FAERS Safety Report 22130717 (Version 2)
Quarter: 2023Q1

REPORT INFORMATION
  Report Type: Spontaneous
  Country: IT (occurrence: IT)
  Receive Date: 20230323
  Receipt Date: 20230327
  Transmission Date: 20230417
  Serious: Yes (Death, Other)
  Sender: FDA-Public Use
  Company Number: IT-GILEAD-2023-0621025

PATIENT
  Sex: Female

DRUGS (1)
  1. YESCARTA [Suspect]
     Active Substance: AXICABTAGENE CILOLEUCEL
     Indication: Product used for unknown indication
     Dosage: 2 X 106/KG
     Route: 065
     Dates: start: 20220616, end: 20220616

REACTIONS (3)
  - Disease progression [Fatal]
  - Cytopenia [Unknown]
  - Cytokine release syndrome [Unknown]
